FAERS Safety Report 7528327-5 (Version None)
Quarter: 2011Q2

REPORT INFORMATION
  Report Type: 
  Country: None (occurrence: None)
  Receive Date: 20110607
  Receipt Date: 20110530
  Transmission Date: 20111010
  Serious: Yes (Hospitalization)
  Sender: FDA-Public Use
  Company Number: NL-MEDIMMUNE-MEDI-0012540

PATIENT
  Sex: Male
  Weight: 3.4 kg

DRUGS (2)
  1. SYNAGIS [Suspect]
     Route: 030
     Dates: start: 20110111, end: 20110111
  2. SYNAGIS [Suspect]
     Route: 030
     Dates: start: 20110208, end: 20110208

REACTIONS (4)
  - RESPIRATION ABNORMAL [None]
  - CARDIAC ARREST [None]
  - APNOEA [None]
  - NASOPHARYNGITIS [None]
